FAERS Safety Report 4652454-3 (Version None)
Quarter: 2005Q2

REPORT INFORMATION
  Report Type: 
  Country: None (occurrence: None)
  Receive Date: 20050502
  Receipt Date: 20050421
  Transmission Date: 20051028
  Serious: Yes (Disabling, Other)
  Sender: FDA-Public Use
  Company Number: 2004-11-0992

PATIENT
  Age: 39 Year
  Sex: Female

DRUGS (1)
  1. CELESTENE (BETAMETHASONE SODIUM PHOSPHATE) INJECTABLE ^LIKE CELESTONE [Suspect]
     Indication: SINUS DISORDER
     Dosage: 4 MG
     Dates: start: 20031102, end: 20031112

REACTIONS (2)
  - ABASIA [None]
  - OSTEONECROSIS [None]
